FAERS Safety Report 8119923-5 (Version None)
Quarter: 2012Q1

REPORT INFORMATION
  Report Type: 
  Country: None (occurrence: None)
  Receive Date: 20120203
  Receipt Date: 20120120
  Transmission Date: 20120608
  Serious: Yes (Other)
  Sender: FDA-Public Use
  Company Number: JPI-P-017117

PATIENT
  Age: 49 Year
  Sex: Male
  Weight: 128.8216 kg

DRUGS (4)
  1. LORAZEPAM [Concomitant]
  2. XYREM [Suspect]
     Indication: CATAPLEXY
     Dosage: 4.5 GM (2.25 GM, 2 IN 1 D), ORAL, 5.5 GM (2.75 GM, 2 IN 1 D), ORAL
     Route: 048
     Dates: start: 20110101
  3. XYREM [Suspect]
     Indication: CATAPLEXY
     Dosage: 4.5 GM (2.25 GM, 2 IN 1 D), ORAL, 5.5 GM (2.75 GM, 2 IN 1 D), ORAL
     Route: 048
     Dates: start: 20110909, end: 20110101
  4. HYDROCODONE BITARTRATE AND ACETAMINOPHEN [Concomitant]

REACTIONS (8)
  - SOMNOLENCE [None]
  - PAIN [None]
  - NERVOUSNESS [None]
  - WEIGHT INCREASED [None]
  - FEELING ABNORMAL [None]
  - WEIGHT DECREASED [None]
  - TACHYCARDIA [None]
  - SURGICAL FAILURE [None]
